FAERS Safety Report 4661051-5 (Version None)
Quarter: 2005Q2

REPORT INFORMATION
  Report Type: 
  Country: None (occurrence: None)
  Receive Date: 20050511
  Receipt Date: 20050429
  Transmission Date: 20051028
  Serious: Yes (Hospitalization)
  Sender: FDA-Public Use
  Company Number: ZICO001209

PATIENT
  Age: 46 Year
  Sex: Male

DRUGS (2)
  1. PRIALT [Suspect]
     Indication: POST PROCEDURAL PAIN
     Dosage: 0.07 MCG/HR INTRATHECAL
     Route: 037
     Dates: start: 20050426, end: 20050429
  2. DEMEROL [Concomitant]

REACTIONS (12)
  - CATHETER RELATED INFECTION [None]
  - CATHETER SITE RELATED REACTION [None]
  - CONFUSIONAL STATE [None]
  - DYSURIA [None]
  - FEELING DRUNK [None]
  - FEELING HOT [None]
  - NAUSEA [None]
  - PAIN [None]
  - PAIN IN EXTREMITY [None]
  - SKIN BURNING SENSATION [None]
  - TESTICULAR PAIN [None]
  - WRONG TECHNIQUE IN DRUG USAGE PROCESS [None]
